FAERS Safety Report 5016371-1 (Version None)
Quarter: 2006Q2

REPORT INFORMATION
  Report Type: 
  Country: None (occurrence: None)
  Receive Date: 20060526
  Receipt Date: 20060518
  Transmission Date: 20061013
  Serious: Yes (Hospitalization, Other)
  Sender: FDA-Public Use
  Company Number: FR_051007236

PATIENT
  Age: 68 Year
  Sex: Female
  Weight: 52 kg

DRUGS (8)
  1. ALIMTA [Suspect]
     Indication: NON-SMALL CELL LUNG CANCER METASTATIC
  2. FOLIC ACID [Concomitant]
  3. VITAMIN B12 [Concomitant]
  4. OFLOXACIN [Concomitant]
  5. NEURONTIN [Concomitant]
  6. INNOHEP [Concomitant]
  7. PROPOFAN /00765201/(CAFFEINE, CARBASALATE CALCIUM, CHLORPHENAMINE MALE [Concomitant]
  8. DEXAMETHASONE [Concomitant]

REACTIONS (1)
  - CYTOLYTIC HEPATITIS [None]
